FAERS Safety Report 7268717-1 (Version None)
Quarter: 2011Q1

REPORT INFORMATION
  Report Type: 
  Country: None (occurrence: None)
  Receive Date: 20110201
  Receipt Date: 20110118
  Transmission Date: 20110831
  Serious: Yes (Other)
  Sender: FDA-Public Use
  Company Number: US-CELGENEUS-163-21880-11011958

PATIENT
  Sex: Male
  Weight: 89.892 kg

DRUGS (9)
  1. MULTI-VITAMIN [Concomitant]
     Route: 065
  2. VITAMIN E [Concomitant]
     Route: 065
  3. REVLIMID [Suspect]
     Indication: MULTIPLE MYELOMA
     Route: 048
     Dates: start: 20091201
  4. PEPCID [Concomitant]
     Route: 065
  5. VITAMIN D [Concomitant]
     Route: 065
  6. DEXAMETHASONE [Concomitant]
     Route: 065
  7. VITAMIN A [Concomitant]
     Route: 065
  8. REVLIMID [Suspect]
     Route: 048
     Dates: start: 20101001
  9. ASCORBIC ACID [Concomitant]
     Route: 065

REACTIONS (13)
  - LIP PAIN [None]
  - DRY MOUTH [None]
  - PARANASAL SINUS HYPERSECRETION [None]
  - DRY EYE [None]
  - NEUROPATHY PERIPHERAL [None]
  - DRY SKIN [None]
  - DEAFNESS [None]
  - TINNITUS [None]
  - AGEUSIA [None]
  - COUGH [None]
  - TREMOR [None]
  - GLOSSODYNIA [None]
  - MUSCLE SPASMS [None]
